FAERS Safety Report 16180711 (Version 2)
Quarter: 2020Q2

REPORT INFORMATION
  Report Type: Spontaneous
  Country: US (occurrence: US)
  Receive Date: 20190410
  Receipt Date: 20200519
  Transmission Date: 20200713
  Serious: No
  Sender: FDA-Public Use
  Company Number: US-BIOMARINAP-US-2019-122584

PATIENT
  Age: 25 Year
  Sex: Female

DRUGS (2)
  1. PALYNZIQ [Suspect]
     Active Substance: PEGVALIASE-PQPZ
     Indication: PRODUCT USED FOR UNKNOWN INDICATION
     Dosage: UNK
     Route: 058
  2. PRE-FILLED SYRINGE (DEVICE) [Suspect]
     Active Substance: DEVICE
     Indication: INJECTION

REACTIONS (2)
  - Needle issue [Unknown]
  - Injection site pain [Unknown]
